FAERS Safety Report 6460415-7 (Version None)
Quarter: 2009Q4

REPORT INFORMATION
  Report Type: 
  Country: None (occurrence: None)
  Receive Date: 20091130
  Receipt Date: 20091117
  Transmission Date: 20100525
  Serious: Yes (Hospitalization)
  Sender: FDA-Public Use
  Company Number: JP-JNJFOC-20091006348

PATIENT
  Sex: Female

DRUGS (5)
  1. FINIBAX [Suspect]
     Indication: POSTOPERATIVE FEVER
     Route: 041
  2. FLUMARIN [Suspect]
     Indication: POSTOPERATIVE FEVER
     Route: 041
  3. ALL OTHER NON-THERAPEUTIC PRODUCTS [Suspect]
     Indication: POSTOPERATIVE ADHESION
  4. BIOFERMIN [Concomitant]
     Route: 048
  5. CODEINE PHOSPHATE [Concomitant]
     Dosage: START DATE: 26-SEP-2009

REACTIONS (1)
  - PYREXIA [None]
